FAERS Safety Report 6719686-1 (Version None)
Quarter: 2010Q2

REPORT INFORMATION
  Report Type: 
  Country: None (occurrence: None)
  Receive Date: 20100510
  Receipt Date: 20100510
  Transmission Date: 20101027
  Serious: Yes (Other)
  Sender: FDA-Public Use
  Company Number: None

PATIENT
  Age: 4 Year
  Sex: Male
  Weight: 17.2367 kg

DRUGS (1)
  1. NASONEX [Suspect]
     Indication: SEASONAL ALLERGY
     Dosage: NASAL SPRAY 1-2 TIMES DAY NASAL
     Route: 045
     Dates: start: 20100412, end: 20100429

REACTIONS (5)
  - AGGRESSION [None]
  - AGITATION [None]
  - ANXIETY [None]
  - OPPOSITIONAL DEFIANT DISORDER [None]
  - STRESS [None]
